FAERS Safety Report 24043661 (Version 2)
Quarter: 2025Q2

REPORT INFORMATION
  Report Type: Report from Study
  Country: SE (occurrence: SE)
  Receive Date: 20240703
  Receipt Date: 20250429
  Transmission Date: 20250716
  Serious: Yes (Other)
  Sender: EMD SERONO INC
  Company Number: SE-SEMPA-2024-004790

PATIENT
  Age: 33 Year
  Sex: Female

DRUGS (1)
  1. MAVENCLAD [Suspect]
     Active Substance: CLADRIBINE
     Indication: Multiple sclerosis

REACTIONS (1)
  - Psoriasis [Recovering/Resolving]

NARRATIVE: CASE EVENT DATE: 20240510
